FAERS Safety Report 15661129 (Version 4)
Quarter: 2019Q1

REPORT INFORMATION
  Report Type: Spontaneous
  Country: CZ (occurrence: CZ)
  Receive Date: 20181127
  Receipt Date: 20190103
  Transmission Date: 20190417
  Serious: Yes (Other)
  Sender: FDA-Public Use
  Company Number: CZ-PFIZER INC-2018481755

PATIENT
  Age: 48 Year
  Sex: Male
  Weight: 98 kg

DRUGS (2)
  1. GLIPIZIDE. [Suspect]
     Active Substance: GLIPIZIDE
     Indication: TYPE 2 DIABETES MELLITUS
     Dosage: 5 MG, 2X/DAY
  2. NEBIVOLOL. [Concomitant]
     Active Substance: NEBIVOLOL
     Indication: HYPERTENSION
     Dosage: 5 MG, 1X/DAY

REACTIONS (2)
  - Condition aggravated [Recovered/Resolved]
  - Diabetes mellitus [Recovered/Resolved]
